FAERS Safety Report 12959469 (Version 3)
Quarter: 2020Q3

REPORT INFORMATION
  Report Type: Spontaneous
  Country: US (occurrence: US)
  Receive Date: 20161121
  Receipt Date: 20200820
  Transmission Date: 20201102
  Serious: Yes (Other)
  Sender: FDA-Public Use
  Company Number: US-AMGEN-USASP2016161096

PATIENT
  Age: 71 Year
  Sex: Female

DRUGS (2)
  1. PROLIA [Suspect]
     Active Substance: DENOSUMAB
     Indication: OSTEOPENIA
     Dosage: 60 MILLIGRAM, Q6MO
     Route: 065
     Dates: start: 20150527
  2. PROLIA [Suspect]
     Active Substance: DENOSUMAB
     Indication: OSTEOPOROSIS POSTMENOPAUSAL

REACTIONS (14)
  - Blood cholesterol increased [Unknown]
  - Tooth extraction [Unknown]
  - Concussion [Unknown]
  - Skin laceration [Unknown]
  - Fall [Unknown]
  - Breast pain [Unknown]
  - Fracture [Unknown]
  - Memory impairment [Unknown]
  - Blood disorder [Unknown]
  - Cataract operation [Unknown]
  - Tooth fracture [Unknown]
  - Tooth disorder [Unknown]
  - Nausea [Unknown]
  - Endodontic procedure [Unknown]

NARRATIVE: CASE EVENT DATE: 201811
